FAERS Safety Report 16028142 (Version 1)
Quarter: 2019Q1

REPORT INFORMATION
  Report Type: Spontaneous
  Country: CN (occurrence: CN)
  Receive Date: 20190304
  Receipt Date: 20190304
  Transmission Date: 20190418
  Serious: Yes (Other)
  Sender: FDA-Public Use
  Company Number: CN-ROCHE-2267618

PATIENT
  Age: 69 Year
  Sex: Female

DRUGS (6)
  1. OXALIPLATIN. [Concomitant]
     Active Substance: OXALIPLATIN
     Dosage: AT DAY 1
     Route: 042
     Dates: start: 20160516, end: 20170801
  2. BEVACIZUMAB. [Suspect]
     Active Substance: BEVACIZUMAB
     Indication: COLON CANCER STAGE IV
     Dosage: AT DAY 1
     Route: 042
     Dates: start: 20160516, end: 20170301
  3. BEVACIZUMAB. [Suspect]
     Active Substance: BEVACIZUMAB
     Indication: METASTASES TO PERITONEUM
  4. FLUOROURACIL. [Concomitant]
     Active Substance: FLUOROURACIL
     Dosage: AT DAY 1
     Route: 042
     Dates: start: 20160516, end: 20170301
  5. FLUOROURACIL. [Concomitant]
     Active Substance: FLUOROURACIL
     Dosage: 46 HRS
     Route: 042
     Dates: start: 20160516, end: 20170301
  6. IRINOTECAN [Concomitant]
     Active Substance: IRINOTECAN
     Dosage: AT DAY 1
     Route: 042
     Dates: start: 20160822, end: 20170301

REACTIONS (2)
  - Neurotoxicity [Unknown]
  - Stomatitis [Unknown]
